FAERS Safety Report 18218660 (Version 11)
Quarter: 2024Q1

REPORT INFORMATION
  Report Type: Spontaneous
  Country: US (occurrence: US)
  Receive Date: 20200901
  Receipt Date: 20240118
  Transmission Date: 20240410
  Serious: Yes (Other)
  Sender: FDA-Public Use
  Company Number: US-PFIZER INC-2020336599

PATIENT
  Age: 60 Year
  Sex: Female

DRUGS (9)
  1. IBRANCE [Suspect]
     Active Substance: PALBOCICLIB
     Indication: Breast cancer female
     Dosage: 100 MG, CYCLIC (ONCE DAILY, 21 DAYS FOR EVERY 28 DAYS)
     Route: 048
     Dates: start: 20200116
  2. IBRANCE [Suspect]
     Active Substance: PALBOCICLIB
     Dosage: 100 MG, CYCLIC (ONCE A DAY FOR 21 DAYS THEN ONE WEEK OFF)
     Route: 048
     Dates: start: 20200428
  3. IBRANCE [Suspect]
     Active Substance: PALBOCICLIB
     Dosage: 100 MG, CYCLIC (TAKE 1 TABLET BY MOUTH ONCE A DAY FOR 21 DAYS ONE WEEK OFF)
     Route: 048
     Dates: start: 20200428
  4. ONDANSETRON [Concomitant]
     Active Substance: ONDANSETRON
     Dosage: UNK
  5. PROCHLORPERAZINE MALEATE [Concomitant]
     Active Substance: PROCHLORPERAZINE MALEATE
     Dosage: UNK
  6. CLOTRIMAZOLE [Concomitant]
     Active Substance: CLOTRIMAZOLE
     Dosage: UNK
  7. LIDOCAINE [Concomitant]
     Active Substance: LIDOCAINE
     Dosage: UNK
  8. NAPROXEN [Concomitant]
     Active Substance: NAPROXEN
     Dosage: UNK
  9. ANASTROZOLE [Concomitant]
     Active Substance: ANASTROZOLE
     Dosage: UNK

REACTIONS (13)
  - Neutropenia [Unknown]
  - Neoplasm progression [Unknown]
  - Fatigue [Recovering/Resolving]
  - Dysgeusia [Unknown]
  - Alopecia [Not Recovered/Not Resolved]
  - Constipation [Unknown]
  - Dry skin [Not Recovered/Not Resolved]
  - Red blood cell count decreased [Unknown]
  - White blood cell count decreased [Unknown]
  - Dyspnoea [Unknown]
  - Decreased appetite [Not Recovered/Not Resolved]
  - Diarrhoea [Not Recovered/Not Resolved]
  - Product dose omission in error [Unknown]

NARRATIVE: CASE EVENT DATE: 20200101
